FAERS Safety Report 6818490-3 (Version None)
Quarter: 2010Q3

REPORT INFORMATION
  Report Type: 
  Country: None (occurrence: None)
  Receive Date: 20100706
  Receipt Date: 20080505
  Transmission Date: 20110219
  Serious: No
  Sender: FDA-Public Use
  Company Number: US-PFIZER INC-2008038663

PATIENT
  Age: 10 Year
  Sex: Female
  Weight: 29.48 kg

DRUGS (1)
  1. ZITHROMAX [Suspect]
     Route: 048

REACTIONS (5)
  - ABDOMINAL PAIN UPPER [None]
  - DIARRHOEA [None]
  - INCORRECT DOSE ADMINISTERED [None]
  - PYREXIA [None]
  - VOMITING [None]
